FAERS Safety Report 9342635 (Version 1)
Quarter: 2013Q2

REPORT INFORMATION
  Report Type: Spontaneous
  Country: US (occurrence: US)
  Receive Date: 20130611
  Receipt Date: 20130611
  Transmission Date: 20140414
  Serious: No
  Sender: FDA-Public Use
  Company Number: US-PFIZER INC-2013173832

PATIENT
  Age: 27 Year
  Sex: Male
  Weight: 99.77 kg

DRUGS (1)
  1. ADVIL [Suspect]
     Indication: CHEST PAIN
     Dosage: UNK

REACTIONS (2)
  - Drug ineffective [Unknown]
  - Dysgeusia [Unknown]
